FAERS Safety Report 14972935 (Version 8)
Quarter: 2018Q3

REPORT INFORMATION
  Report Type: Report from Study
  Country: CA (occurrence: CA)
  Receive Date: 20180605
  Receipt Date: 20180726
  Transmission Date: 20181010
  Serious: Yes (Hospitalization)
  Sender: FDA-Public Use
  Company Number: CA-AMGEN-CANSL2018046711

PATIENT
  Age: 62 Year
  Sex: Male

DRUGS (6)
  1. KYPROLIS [Suspect]
     Active Substance: CARFILZOMIB
     Dosage: UNK, 2 DAYS A WEEK FOR 3 WEEKS WITH ONE WEEK OFF
     Route: 042
  2. DEXAMETHASONE. [Suspect]
     Active Substance: DEXAMETHASONE
     Indication: PLASMA CELL MYELOMA
     Dosage: UNK
     Route: 048
  3. KYPROLIS [Suspect]
     Active Substance: CARFILZOMIB
     Indication: PLASMA CELL MYELOMA
     Dosage: 44 MG (DECREASED DOSE), 2 DAYS A WEEK FOR 3 WEEKS WITH ONE WEEK OFF
     Route: 042
  4. KYPROLIS [Suspect]
     Active Substance: CARFILZOMIB
     Dosage: UNK, DAY 1, 2, 8, 9, 15, 16/ Q CYCLE
     Route: 042
  5. KYPROLIS [Suspect]
     Active Substance: CARFILZOMIB
     Dosage: UNK, 2 DAYS A WEEK FOR 3 WEEKS WITH ONE WEEK OFF
     Route: 042
  6. KYPROLIS [Suspect]
     Active Substance: CARFILZOMIB
     Dosage: UNK, DAY 1, 2, 8, 9, 15, 16/ Q CYCLE
     Route: 042

REACTIONS (45)
  - Oropharyngeal pain [Unknown]
  - Cough [Recovering/Resolving]
  - Somnolence [Recovered/Resolved]
  - Mucosal inflammation [Recovered/Resolved]
  - Muscle spasms [Recovering/Resolving]
  - Blood pressure increased [Not Recovered/Not Resolved]
  - Catheter removal [Unknown]
  - Anosmia [Not Recovered/Not Resolved]
  - Skin burning sensation [Not Recovered/Not Resolved]
  - Endocrine disorder [Not Recovered/Not Resolved]
  - Insomnia [Unknown]
  - Muscular weakness [Not Recovered/Not Resolved]
  - Nausea [Recovered/Resolved]
  - General physical health deterioration [Unknown]
  - Fatigue [Recovering/Resolving]
  - Dizziness [Unknown]
  - Off label use [Unknown]
  - Peripheral swelling [Not Recovered/Not Resolved]
  - Back pain [Unknown]
  - Dyspnoea [Recovering/Resolving]
  - Malaise [Recovering/Resolving]
  - Depression [Recovering/Resolving]
  - Cognitive disorder [Recovered/Resolved]
  - Appetite disorder [Recovered/Resolved]
  - Tongue discomfort [Not Recovered/Not Resolved]
  - Sensitivity of teeth [Not Recovered/Not Resolved]
  - Vomiting [Recovered/Resolved]
  - Mucosal inflammation [Unknown]
  - Pain [Recovering/Resolving]
  - Dyspepsia [Recovered/Resolved]
  - Hypoacusis [Unknown]
  - Ageusia [Not Recovered/Not Resolved]
  - Feeling hot [Unknown]
  - Dry mouth [Recovered/Resolved]
  - Tooth disorder [Not Recovered/Not Resolved]
  - Palmar-plantar erythrodysaesthesia syndrome [Unknown]
  - Dysphonia [Unknown]
  - Diarrhoea [Recovered/Resolved]
  - Wheezing [Unknown]
  - Pneumonia [Unknown]
  - Facial paresis [Unknown]
  - Abdominal distension [Unknown]
  - Anxiety [Recovering/Resolving]
  - Constipation [Unknown]
  - Skin abrasion [Unknown]

NARRATIVE: CASE EVENT DATE: 2018
